FAERS Safety Report 9288763 (Version 1)
Quarter: 2013Q2

REPORT INFORMATION
  Report Type: Spontaneous
  Country: US (occurrence: None)
  Receive Date: 20130509
  Receipt Date: 20130509
  Transmission Date: 20140414
  Serious: Yes (Other)
  Sender: FDA-Public Use
  Company Number: FK201301391

PATIENT
  Age: 62 Year
  Sex: Female

DRUGS (2)
  1. BUPIVACAINE [Suspect]
     Indication: ANAESTHESIA
     Dosage: OTHER
  2. DEXAMETHASONE INJECTION (MANUFACTURER UNKNOWN) (DEXAMETHASONE SODIUM PHOSPHATE) (DEXAMETHASONE SODIUM PHOSPHATE) [Suspect]
     Indication: ANAESTHESIA
     Dosage: OTHER?

REACTIONS (1)
  - Phrenic nerve paralysis [None]
